FAERS Safety Report 16909092 (Version 1)
Quarter: 2019Q4

REPORT INFORMATION
  Report Type: Spontaneous
  Country: FR (occurrence: FR)
  Receive Date: 20191011
  Receipt Date: 20191011
  Transmission Date: 20200122
  Serious: Yes (Life-Threatening, Hospitalization)
  Sender: FDA-Public Use
  Company Number: FR-PFIZER INC-2019435474

PATIENT
  Age: 46 Year
  Sex: Male

DRUGS (3)
  1. LYRICA [Suspect]
     Active Substance: PREGABALIN
     Indication: EPILEPSY
     Dosage: 50 DF, SINGLE
     Dates: start: 20190822
  2. RISPERDAL [Suspect]
     Active Substance: RISPERIDONE
     Dosage: 4 DF, SINGLE
  3. VALIUM [Suspect]
     Active Substance: DIAZEPAM
     Dosage: UNK
     Dates: start: 20190822

REACTIONS (3)
  - Intentional overdose [Unknown]
  - Coma [Recovered/Resolved]
  - Drug abuse [Not Recovered/Not Resolved]

NARRATIVE: CASE EVENT DATE: 2019
